FAERS Safety Report 13865255 (Version 2)
Quarter: 2017Q3

REPORT INFORMATION
  Report Type: Report from Study
  Country: CZ (occurrence: CZ)
  Receive Date: 20170814
  Receipt Date: 20170822
  Transmission Date: 20171127
  Serious: Yes (Other)
  Sender: FDA-Public Use
  Company Number: CZ-BAYER-2017-149195

PATIENT
  Age: 33 Year
  Sex: Female
  Weight: 60 kg

DRUGS (2)
  1. MIRENA [Suspect]
     Active Substance: LEVONORGESTREL
     Indication: CONTRACEPTION
     Dosage: 20 MCG/24HR, CONT
     Route: 015
     Dates: start: 20161125, end: 20170411
  2. SUMATRIPTAN. [Concomitant]
     Active Substance: SUMATRIPTAN

REACTIONS (15)
  - Hot flush [Recovered/Resolved]
  - Malaise [Recovered/Resolved]
  - Sputum discoloured [None]
  - Presyncope [Recovered/Resolved]
  - Pelvic pain [Recovered/Resolved]
  - Infection [None]
  - Migraine [Recovered/Resolved]
  - Pharyngitis [None]
  - Resting tremor [None]
  - Circulatory collapse [Recovered/Resolved]
  - Asthenia [Recovered/Resolved]
  - Palpitations [None]
  - Nausea [Recovered/Resolved]
  - Productive cough [None]
  - Throat irritation [None]

NARRATIVE: CASE EVENT DATE: 201702
